FAERS Safety Report 6284402-7 (Version None)
Quarter: 2009Q3

REPORT INFORMATION
  Report Type: 
  Country: None (occurrence: None)
  Receive Date: 20090727
  Receipt Date: 20090702
  Transmission Date: 20100115
  Serious: No
  Sender: FDA-Public Use
  Company Number: US-ROCHE-642100

PATIENT
  Age: 95 Year
  Sex: Male
  Weight: 64.6 kg

DRUGS (2)
  1. TAMIFLU [Suspect]
     Dosage: AFTER EVERY OTHER HEMODIALYSIS FOR 10 DAYS; POWDERF OR SUSPECSION
     Route: 048
     Dates: start: 20090630, end: 20090711
  2. TAMIFLU [Suspect]
     Route: 048

REACTIONS (3)
  - NO ADVERSE EVENT [None]
  - OVERDOSE [None]
  - WRONG TECHNIQUE IN DRUG USAGE PROCESS [None]
